FAERS Safety Report 14244314 (Version 4)
Quarter: 2020Q2

REPORT INFORMATION
  Report Type: Report from Study
  Country: US (occurrence: US)
  Receive Date: 20171201
  Receipt Date: 20200506
  Transmission Date: 20200713
  Serious: Yes (Hospitalization)
  Sender: FDA-Public Use
  Company Number: US-ALEXION PHARMACEUTICALS INC.-A201713075

PATIENT
  Sex: Female
  Weight: 59.6 kg

DRUGS (1)
  1. STRENSIQ [Suspect]
     Active Substance: ASFOTASE ALFA
     Indication: HYPOPHOSPHATASIA
     Dosage: 60 MG, SIX TIMES/WEEK
     Route: 058
     Dates: start: 20170604

REACTIONS (5)
  - Spinal pain [Unknown]
  - Heart rate increased [Unknown]
  - Pyrexia [Unknown]
  - Pain [Unknown]
  - Appendix disorder [Unknown]
